FAERS Safety Report 10200391 (Version 1)
Quarter: 2014Q2

REPORT INFORMATION
  Report Type: Spontaneous
  Country: SG (occurrence: SG)
  Receive Date: 20140528
  Receipt Date: 20140528
  Transmission Date: 20141212
  Serious: Yes (Other)
  Sender: FDA-Public Use
  Company Number: SG-009507513-1405SGP010359

PATIENT
  Age: 54 Year
  Sex: Male

DRUGS (1)
  1. COZAAR 50 MG TABLET [Suspect]

REACTIONS (1)
  - Discomfort [Unknown]
